FAERS Safety Report 17468134 (Version 1)
Quarter: 2020Q1

REPORT INFORMATION
  Report Type: Spontaneous
  Country: US (occurrence: US)
  Receive Date: 20200227
  Receipt Date: 20200227
  Transmission Date: 20200409
  Serious: Yes (Other)
  Sender: FDA-Public Use
  Company Number: US-FDC LIMITED-2020RIS00069

PATIENT
  Sex: Male
  Weight: 104.31 kg

DRUGS (15)
  1. TIMOLOL MALEATE. [Suspect]
     Active Substance: TIMOLOL MALEATE
     Indication: INTRAOCULAR PRESSURE TEST ABNORMAL
     Dosage: 1 DROP, 1X/DAY ^IN EACH EYE^
     Dates: start: 2019
  2. VITAMIN D3 [Concomitant]
     Active Substance: CHOLECALCIFEROL
  3. OMEPRAZOLE. [Concomitant]
     Active Substance: OMEPRAZOLE
     Dosage: UNK
  4. LOSARTAN. [Concomitant]
     Active Substance: LOSARTAN
     Dosage: UNK
  5. AMLODIPINE [Suspect]
     Active Substance: AMLODIPINE BESYLATE
     Dosage: UNK
     Dates: end: 202002
  6. FISH OIL [Concomitant]
     Active Substance: FISH OIL
  7. TRIAMTERENE AND HYDROCHLOROTHIAZIDE [Concomitant]
     Active Substance: HYDROCHLOROTHIAZIDE\TRIAMTERENE
  8. CLOPIDOGREL [Concomitant]
     Active Substance: CLOPIDOGREL BISULFATE
  9. SENIOR MULTIVITAMIN [Concomitant]
  10. TIMOLOL MALEATE. [Suspect]
     Active Substance: TIMOLOL MALEATE
     Dosage: 1 DROP, 1X/DAY ^IN EACH EYE^
     Dates: start: 2019
  11. ALLOPURINOL. [Concomitant]
     Active Substance: ALLOPURINOL
     Dosage: UNK
  12. UNSPECIFIED ANTIHISTAMINE [Concomitant]
     Active Substance: ANTIHISTAMINES NOS
  13. LEVOTHYROXINE. [Concomitant]
     Active Substance: LEVOTHYROXINE
     Dosage: UNK
  14. ATORVASTATIN [Concomitant]
     Active Substance: ATORVASTATIN
     Dosage: UNK
  15. PHILLIPS COLON HEALTH [Concomitant]

REACTIONS (7)
  - Allergy to metals [Not Recovered/Not Resolved]
  - Blood sodium decreased [Unknown]
  - Hypersensitivity [Not Recovered/Not Resolved]
  - Hypotension [Unknown]
  - Rash erythematous [Not Recovered/Not Resolved]
  - Reaction to preservatives [Not Recovered/Not Resolved]
  - Prostate cancer [Not Recovered/Not Resolved]

NARRATIVE: CASE EVENT DATE: 2019
